FAERS Safety Report 6566039-5 (Version None)
Quarter: 2010Q1

REPORT INFORMATION
  Report Type: 
  Country: None (occurrence: None)
  Receive Date: 20100202
  Receipt Date: 20100121
  Transmission Date: 20100710
  Serious: Yes (Congenital Anomaly)
  Sender: FDA-Public Use
  Company Number: GB-BRISTOL-MYERS SQUIBB COMPANY-14955132

PATIENT
  Sex: Female

DRUGS (4)
  1. METFORMIN HCL [Suspect]
     Dosage: 1500MG
     Route: 064
     Dates: start: 20090101, end: 20090612
  2. BYETTA [Suspect]
     Route: 064
     Dates: start: 20090101, end: 20090612
  3. INSULIN [Suspect]
  4. LABETALOL HCL [Suspect]

REACTIONS (4)
  - CAESAREAN SECTION [None]
  - CONGENITAL INTESTINAL MALFORMATION [None]
  - INTESTINAL MALROTATION [None]
  - MATERNAL DRUGS AFFECTING FOETUS [None]
